FAERS Safety Report 6391062-3 (Version None)
Quarter: 2009Q4

REPORT INFORMATION
  Report Type: 
  Country: None (occurrence: None)
  Receive Date: 20091006
  Receipt Date: 20091006
  Transmission Date: 20100525
  Serious: Yes (Other)
  Sender: FDA-Public Use
  Company Number: None

PATIENT
  Age: 46 Year
  Sex: Female
  Weight: 63.5036 kg

DRUGS (1)
  1. BROAD SPECTRUM SUNSCREEN BABY TEAR FREE BANANA BOAT [Suspect]
     Indication: PROPHYLAXIS AGAINST SOLAR RADIATION
     Dosage: APPLICATION TO SKIN ONCE TOP
     Route: 061
     Dates: start: 20090928, end: 20090928

REACTIONS (2)
  - BLISTER [None]
  - THERMAL BURN [None]
